APPROVED DRUG PRODUCT: QUILLICHEW ER
Active Ingredient: METHYLPHENIDATE HYDROCHLORIDE
Strength: 40MG
Dosage Form/Route: TABLET, EXTENDED RELEASE, CHEWABLE;ORAL
Application: N207960 | Product #003
Applicant: NEXTWAVE PHARMACEUTICALS INC
Approved: Dec 4, 2015 | RLD: Yes | RS: Yes | Type: RX

PATENTS:
Patent 9545399 | Expires: Aug 14, 2033
Patent 9844544 | Expires: Aug 14, 2033
Patent 10857143 | Expires: Aug 14, 2033
Patent 11103495 | Expires: Aug 14, 2033
Patent 9295642 | Expires: Aug 14, 2033
Patent 11103494 | Expires: Aug 14, 2033
Patent 11633389 | Expires: Aug 14, 2033
Patent 8999386 | Expires: Aug 14, 2033
Patent 8287903 | Expires: Feb 15, 2031
Patent 8202537 | Expires: Mar 15, 2027